FAERS Safety Report 8543405-X (Version None)
Quarter: 2012Q3

REPORT INFORMATION
  Report Type: 
  Country: None (occurrence: None)
  Receive Date: 20120727
  Receipt Date: 20120720
  Transmission Date: 20120928
  Serious: Yes (Hospitalization, Other)
  Sender: FDA-Public Use
  Company Number: PHHY2012FR058060

PATIENT
  Sex: Female

DRUGS (49)
  1. METHOTREXATE [Suspect]
     Dosage: 15 MG, UNK
     Dates: start: 20120524
  2. ASPEGIC 1000 [Concomitant]
     Indication: ISCHAEMIC STROKE
     Dosage: 250 MG, DAILY
     Dates: start: 20120505
  3. FLAGYL [Concomitant]
     Dosage: UNK
     Dates: start: 20120522, end: 20120528
  4. CLONAZEPAM [Concomitant]
  5. CYTARABINE [Suspect]
     Dosage: 40 MG, UNK
     Dates: start: 20120524
  6. METHOTREXATE [Suspect]
     Dosage: 15 MG, UNK
     Dates: start: 20120517
  7. FLUCONAZOLE [Concomitant]
     Dosage: 200 MG, BID
     Dates: start: 20120509, end: 20120526
  8. ZYVOX [Concomitant]
     Dosage: 600 MG, BID
     Dates: start: 20120526, end: 20120528
  9. TRANDATE [Concomitant]
     Dosage: 200 MG, UNK
     Dates: end: 20120501
  10. AMPHOTERICIN B [Concomitant]
     Dosage: 75 MG, DAILY
     Route: 017
     Dates: start: 20120524, end: 20120527
  11. DEPAKENE [Concomitant]
  12. KEPPRA [Concomitant]
  13. IDARUBICIN HCL [Concomitant]
     Dosage: 13 MG, UNK
     Dates: start: 20120511
  14. OLMESARTAN MEDOXOMIL AND HYDROCHLOROTHIZIDE [Concomitant]
     Dosage: UNK
     Dates: end: 20120501
  15. METFORMIN HYDROCHLORIDE [Concomitant]
  16. FENOFIBRATE [Concomitant]
  17. VINCRISTINE [Concomitant]
     Dosage: 1.5 MG, UNK
     Dates: start: 20120517
  18. VINCRISTINE [Concomitant]
     Dosage: 1.5 MG, UNK
     Dates: start: 20120524
  19. VANCOMYCIN [Concomitant]
     Dosage: 2.5 G, DAILY
     Dates: start: 20120505, end: 20120522
  20. ASPEGIC 1000 [Concomitant]
     Dosage: 100 MG, DAILY
  21. BACTRIM DS [Concomitant]
     Dosage: 1 DF, 3 TIMES EVERY WEEKS
     Dates: start: 20120509
  22. MESNA [Concomitant]
     Dosage: 400 MG, UNK
     Dates: start: 20120517
  23. COLIMYCINE [Concomitant]
     Dosage: UNK
     Dates: start: 20120522, end: 20120528
  24. CYTARABINE [Suspect]
     Indication: ACUTE LYMPHOCYTIC LEUKAEMIA
     Dosage: 40 MG, UNK
     Route: 037
     Dates: start: 20120507, end: 20120524
  25. CYTARABINE [Suspect]
     Dosage: 40 MG, UNK
     Dates: start: 20120517
  26. VIBRAMYCIN D [Concomitant]
     Dosage: 200 MG, DAILY
     Dates: start: 20120505, end: 20120522
  27. FLUCONAZOLE [Concomitant]
     Dosage: 200 MG, BID
     Route: 042
     Dates: start: 20120531
  28. CYCLOPHOSPHAMIDE [Concomitant]
     Dosage: 1.2 G, UNK
     Dates: start: 20120510
  29. CYCLOPHOSPHAMIDE [Concomitant]
     Dosage: 1.2 G, UNK
     Dates: start: 20120517
  30. TAZOBACTAM [Concomitant]
     Dosage: 4 G, TID
     Dates: start: 20120523, end: 20120528
  31. PYOSTACINE [Concomitant]
     Dosage: 6 DF, DAILY
     Dates: start: 20120529
  32. IDARUBICIN HCL [Concomitant]
     Dosage: 13 MG, UNK
     Dates: start: 20120512
  33. METHYLPREDNISOLONE [Concomitant]
     Dosage: 80 MG, DAILY
     Dates: start: 20120505, end: 20120520
  34. CIPROFLOXACIN HYDROCHLORIDE [Concomitant]
     Dosage: 500 MG, UNK
     Dates: start: 20120505, end: 20120522
  35. HEPARIN SODIUM [Concomitant]
     Dosage: UNK
     Dates: start: 20120505, end: 20120527
  36. IDARUBICIN HCL [Concomitant]
     Dosage: 13 MG, UNK
     Dates: start: 20120510
  37. VENTOLIN [Concomitant]
     Dosage: UNK
     Dates: end: 20120501
  38. IMATINIB MESYLATE [Suspect]
     Indication: ACUTE LYMPHOCYTIC LEUKAEMIA
     Dosage: 400 MG, DAILY
     Route: 048
     Dates: start: 20120510, end: 20120526
  39. VALACYCLOVIR HYDROCHLORIDE [Concomitant]
     Dosage: 500 MG, UNK
     Dates: start: 20120505
  40. MESNA [Concomitant]
     Dosage: 600 MG, UNK
     Dates: start: 20120510
  41. AMIKACIN [Concomitant]
     Dosage: 750 MG, DAILY
     Dates: start: 20120523, end: 20120526
  42. IMIPENEM AND CILASTATIN SODIUM [Concomitant]
     Dosage: UNK
     Dates: start: 20120528
  43. VFEND [Concomitant]
     Dosage: UNK
     Dates: start: 20120528, end: 20120531
  44. IDARUBICIN HCL [Concomitant]
     Dosage: 1.3 MG, UNK
     Dates: start: 20120517
  45. METHOTREXATE [Suspect]
     Indication: ACUTE LYMPHOCYTIC LEUKAEMIA
     Dosage: 15 MG, UNK
     Route: 037
     Dates: start: 20120507
  46. VINCRISTINE [Concomitant]
     Dosage: 1.5 MG, UNK
     Dates: start: 20120510
  47. GENTAMICIN [Concomitant]
     Dosage: UNK
     Route: 048
     Dates: start: 20120505, end: 20120509
  48. ROCEPHIN [Concomitant]
     Dosage: 2 G, UNK
     Route: 042
     Dates: start: 20120505, end: 20120522
  49. FOSPHENYTOIN SODIUM [Concomitant]

REACTIONS (13)
  - COMA [None]
  - SEPSIS [None]
  - OEDEMA [None]
  - CANDIDIASIS [None]
  - STATUS EPILEPTICUS [None]
  - SUBARACHNOID HAEMORRHAGE [None]
  - CANDIDA SEPSIS [None]
  - CONVULSION [None]
  - BONE MARROW FAILURE [None]
  - ISCHAEMIC STROKE [None]
  - IATROGENIC INJURY [None]
  - POSTERIOR REVERSIBLE ENCEPHALOPATHY SYNDROME [None]
  - APLASIA [None]
